FAERS Safety Report 23954058 (Version 1)
Quarter: 2024Q2

REPORT INFORMATION
  Report Type: Other
  Country: US (occurrence: None)
  Receive Date: 20240609
  Receipt Date: 20240609
  Transmission Date: 20240715
  Serious: Yes (Other)
  Sender: FDA-Public Use
  Company Number: US-ROCHE-3484578

PATIENT
  Age: 43 Year
  Sex: Female

DRUGS (5)
  1. TENECTEPLASE [Suspect]
     Active Substance: TENECTEPLASE
     Indication: Fibromuscular dysplasia
     Route: 042
  2. CLEVIDIPINE [Concomitant]
     Active Substance: CLEVIDIPINE
  3. EPTIFIBATIDE [Concomitant]
     Active Substance: EPTIFIBATIDE
  4. ASPIRIN [Concomitant]
     Active Substance: ASPIRIN
  5. CLOPIDOGREL [Concomitant]
     Active Substance: CLOPIDOGREL BISULFATE

REACTIONS (2)
  - Subarachnoid haemorrhage [Unknown]
  - Haematoma [Unknown]
